FAERS Safety Report 14604949 (Version 1)
Quarter: 2018Q1

REPORT INFORMATION
  Report Type: Spontaneous
  Country: US (occurrence: US)
  Receive Date: 20180306
  Receipt Date: 20180306
  Transmission Date: 20180509
  Serious: Yes (Hospitalization)
  Sender: FDA-Public Use
  Company Number: US-PFIZER INC-2018089406

PATIENT
  Age: 102 Year
  Sex: Female
  Weight: 57 kg

DRUGS (1)
  1. PREMARIN [Suspect]
     Active Substance: ESTROGENS, CONJUGATED
     Indication: HYSTERECTOMY
     Dosage: 0.625 MG, 1X/DAY, 0.625MG TABLET BY MOUTH ONCE A DAY FOR 5 DAYS AND THEN OFF FOR 2 DAYS
     Route: 048

REACTIONS (3)
  - Muscle strain [Recovering/Resolving]
  - Product use issue [Unknown]
  - Muscle haemorrhage [Recovering/Resolving]

NARRATIVE: CASE EVENT DATE: 20180221
